FAERS Safety Report 5883358-6 (Version None)
Quarter: 2008Q3

REPORT INFORMATION
  Report Type: 
  Country: None (occurrence: None)
  Receive Date: 20080910
  Receipt Date: 20080826
  Transmission Date: 20090109
  Serious: Yes (Hospitalization, Other)
  Sender: FDA-Public Use
  Company Number: DSJ-2008-09940

PATIENT
  Age: 60 Year
  Sex: Male
  Weight: 63.4 kg

DRUGS (11)
  1. OLMESARTAN MEDOXOMIL [Suspect]
     Indication: ESSENTIAL HYPERTENSION
     Dosage: 20 MG (20 MG, 1 IN 1 D) , PER ORAL
     Route: 048
     Dates: start: 20061028
  2. CARVEDILOL [Suspect]
     Indication: ESSENTIAL HYPERTENSION
     Dosage: 10 MG (10 MG, 1 IN 1 D) , PER ORAL
     Route: 048
     Dates: start: 20071129
  3. DONASHIN (DOXAZOSIN MESILATE) (DOXAZOSIN MESILATE) [Concomitant]
  4. MAIBASTAN (PRAVASTATIN SODIUM) (PRAVASTATIN SODIUM) [Concomitant]
  5. EUGLUCON (GLIBENCLAMIDE) (GLIBENCLAMIDE) [Concomitant]
  6. NORVASC [Concomitant]
  7. DIART (AZOSEMIDE) (AZOSEMIDE) [Concomitant]
  8. LIPITOR [Concomitant]
  9. VOGLIBOSE QD [Concomitant]
  10. BAYASPIRIN (ACETYLSALICYLIC ACID) (ACETYLSALICYLIC ACID) [Concomitant]
  11. OMEPRAZOLE [Concomitant]

REACTIONS (2)
  - CONDITION AGGRAVATED [None]
  - DIABETIC NEPHROPATHY [None]
